FAERS Safety Report 8616504-1 (Version None)
Quarter: 2012Q3

REPORT INFORMATION
  Report Type: 
  Country: None (occurrence: None)
  Receive Date: 20120823
  Receipt Date: 20120820
  Transmission Date: 20120928
  Serious: Yes (Hospitalization)
  Sender: FDA-Public Use
  Company Number: US-AMGEN-USASP2012046784

PATIENT
  Age: 79 Year
  Sex: Female
  Weight: 64.853 kg

DRUGS (1)
  1. PROLIA [Suspect]
     Indication: OSTEOPOROSIS
     Dosage: 60 MG, Q6MO
     Route: 058
     Dates: start: 20120501, end: 20120501

REACTIONS (3)
  - TOOTH LOSS [None]
  - TOOTH FRACTURE [None]
  - ADVERSE EVENT [None]
